FAERS Safety Report 7674570-4 (Version None)
Quarter: 2011Q3

REPORT INFORMATION
  Report Type: 
  Country: None (occurrence: None)
  Receive Date: 20110810
  Receipt Date: 20110802
  Transmission Date: 20111222
  Serious: Yes (Hospitalization)
  Sender: FDA-Public Use
  Company Number: PHEH2011US00631

PATIENT
  Sex: Male

DRUGS (16)
  1. LISINOPRIL [Concomitant]
     Indication: BLOOD PRESSURE ABNORMAL
     Dosage: UNK UKN, UNK
  2. PYRIMIDINE [Concomitant]
     Indication: TREMOR
     Dosage: UNK UKN, UNK
  3. MORPHINE [Concomitant]
     Dosage: UNK UKN, UNK
  4. ACETYLSALICYLIC ACID SRT [Concomitant]
     Dosage: UNK UKN, UNK
  5. NAMENDA [Suspect]
     Indication: DEMENTIA ALZHEIMER'S TYPE
     Dosage: 10 MG, BID
  6. ATENOLOL [Concomitant]
     Indication: BLOOD PRESSURE ABNORMAL
  7. ZETIA [Concomitant]
     Dosage: UNK UKN, UNK
  8. CETIRIZINE HCL [Concomitant]
     Dosage: UNK UKN, UNK
  9. METFORMIN HCL [Concomitant]
     Indication: DIABETES MELLITUS
     Dosage: UNK UKN, UNK
  10. ENABLEX [Concomitant]
     Dosage: UNK UKN, UNK
  11. COLACE [Concomitant]
     Dosage: UNK UKN, UNK
  12. AMBIEN CR [Concomitant]
     Dosage: UNK UKN, UNK
  13. EXELON [Suspect]
     Indication: DEMENTIA ALZHEIMER'S TYPE
     Dosage: 9.5 MG, DAILY
     Route: 062
  14. LIPITOR [Concomitant]
     Dosage: UNK UKN, UNK
  15. TRILIPIX [Concomitant]
     Dosage: UNK UKN, UNK
  16. TRAZODONE HCL [Concomitant]
     Dosage: UNK UKN, UNK

REACTIONS (2)
  - ROAD TRAFFIC ACCIDENT [None]
  - FACIAL BONES FRACTURE [None]
